FAERS Safety Report 7588671-2 (Version None)
Quarter: 2011Q3

REPORT INFORMATION
  Report Type: 
  Country: None (occurrence: None)
  Receive Date: 20110705
  Receipt Date: 20110705
  Transmission Date: 20111222
  Serious: Yes (Hospitalization)
  Sender: FDA-Public Use
  Company Number: None

PATIENT
  Sex: Male
  Weight: 75 kg

DRUGS (1)
  1. EVEROLIMUS [Suspect]
     Indication: GASTRIC CANCER
     Dosage: 10 MG
     Route: 048
     Dates: start: 20110523, end: 20110626

REACTIONS (6)
  - DIARRHOEA [None]
  - NEOPLASM PROGRESSION [None]
  - FAECES DISCOLOURED [None]
  - MALAISE [None]
  - TUMOUR PERFORATION [None]
  - HAEMOGLOBIN DECREASED [None]
